FAERS Safety Report 5616622-6 (Version None)
Quarter: 2008Q1

REPORT INFORMATION
  Report Type: 
  Country: None (occurrence: None)
  Receive Date: 20080207
  Receipt Date: 20071106
  Transmission Date: 20080703
  Serious: No
  Sender: FDA-Public Use
  Company Number: A0691719A

PATIENT
  Sex: Female

DRUGS (1)
  1. PAXIL CR [Suspect]
     Indication: MOOD SWINGS
     Dosage: 12.5MG TWICE PER DAY
     Route: 048
     Dates: start: 20071103

REACTIONS (4)
  - ANOREXIA [None]
  - HEADACHE [None]
  - NAUSEA [None]
  - SINUS CONGESTION [None]
